FAERS Safety Report 6594552-3 (Version None)
Quarter: 2010Q1

REPORT INFORMATION
  Report Type: 
  Country: None (occurrence: None)
  Receive Date: 20100222
  Receipt Date: 20100211
  Transmission Date: 20100710
  Serious: Yes (Other)
  Sender: FDA-Public Use
  Company Number: PHHY2010FI05499

PATIENT
  Age: 57 Year
  Sex: Female

DRUGS (1)
  1. LEPONEX [Suspect]
     Dosage: 50 MG + 50 MG + 150 MG
     Dates: start: 20090701

REACTIONS (3)
  - EOSINOPHILIA [None]
  - NEUTROPHIL COUNT DECREASED [None]
  - THROMBOCYTOPENIA [None]
